FAERS Safety Report 20946558 (Version 1)
Quarter: 2022Q2

REPORT INFORMATION
  Report Type: Other
  Country: EG (occurrence: None)
  Receive Date: 20220610
  Receipt Date: 20220610
  Transmission Date: 20220721
  Serious: Yes (Other)
  Sender: FDA-Public Use
  Company Number: EG-ROCHE-3115335

PATIENT

DRUGS (1)
  1. CAPECITABINE [Suspect]
     Active Substance: CAPECITABINE
     Indication: Bladder transitional cell carcinoma
     Route: 048

REACTIONS (1)
  - Haematotoxicity [Recovered/Resolved]
